FAERS Safety Report 4310495-X (Version None)
Quarter: 2004Q1

REPORT INFORMATION
  Report Type: 
  Country: None (occurrence: None)
  Receive Date: 20040303
  Receipt Date: 20040225
  Transmission Date: 20041129
  Serious: Yes (Hospitalization)
  Sender: FDA-Public Use
  Company Number: PHBS2004HK02775

PATIENT
  Age: 27 Year
  Sex: Male

DRUGS (3)
  1. CLOZAPINE [Suspect]
     Indication: NEGATIVISM
     Dosage: 25 MG/D
     Route: 065
  2. CLOZAPINE [Suspect]
     Dosage: 300 MG/D
     Route: 065
  3. CLOZAPINE [Suspect]
     Dosage: 150 MG/D
     Route: 065

REACTIONS (6)
  - BLOOD CATECHOLAMINES INCREASED [None]
  - DRUG INEFFECTIVE [None]
  - HEADACHE [None]
  - HYPERTENSION [None]
  - NOREPINEPHRINE INCREASED [None]
  - PSEUDOPHAEOCHROMOCYTOMA [None]
